FAERS Safety Report 8574769-9 (Version None)
Quarter: 2012Q3

REPORT INFORMATION
  Report Type: 
  Country: None (occurrence: None)
  Receive Date: 20120807
  Receipt Date: 20120703
  Transmission Date: 20120928
  Serious: Yes (Hospitalization, Other)
  Sender: FDA-Public Use
  Company Number: US-009507513-2009SP041027

PATIENT
  Sex: Female
  Weight: 113.4 kg

DRUGS (1)
  1. NUVARING [Suspect]
     Indication: CONTRACEPTION
     Route: 067
     Dates: start: 20060301, end: 20071201

REACTIONS (6)
  - THROMBOSIS [None]
  - BRONCHITIS [None]
  - PULMONARY EMBOLISM [None]
  - HEPATIC CYST [None]
  - CHLAMYDIAL INFECTION [None]
  - HEADACHE [None]
